FAERS Safety Report 24620531 (Version 1)
Quarter: 2024Q4

REPORT INFORMATION
  Report Type: Spontaneous
  Country: US (occurrence: US)
  Receive Date: 20241114
  Receipt Date: 20241114
  Transmission Date: 20250115
  Serious: No
  Sender: PFIZER
  Company Number: US-PFIZER INC-202400300563

PATIENT
  Age: 64 Year
  Sex: Male

DRUGS (1)
  1. XELJANZ XR [Suspect]
     Active Substance: TOFACITINIB CITRATE
     Indication: Osteoarthritis
     Dosage: 11 MG ER TABLET. TAKE 1 TABLET (11 MG TOTAL) BY RNOUTH 1 (ONE) TIME EACH DAY
     Route: 048

REACTIONS (1)
  - Arthralgia [Unknown]
